FAERS Safety Report 12346450 (Version 1)
Quarter: 2016Q2

REPORT INFORMATION
  Report Type: Spontaneous
  Country: US (occurrence: US)
  Receive Date: 20160509
  Receipt Date: 20160509
  Transmission Date: 20160815
  Serious: Yes (Other)
  Sender: FDA-Public Use
  Company Number: US-BAYER-2016-087351

PATIENT

DRUGS (1)
  1. CLARITIN [Suspect]
     Active Substance: LORATADINE
     Indication: CHEMOTHERAPY
     Dosage: 1 DF, ONCE DAILY
     Route: 048

REACTIONS (4)
  - Product use issue [None]
  - Heart rate decreased [None]
  - Hypotension [None]
  - Cerebrovascular accident [None]
